FAERS Safety Report 16272066 (Version 1)
Quarter: 2019Q2

REPORT INFORMATION
  Report Type: Report from Study
  Country: US (occurrence: US)
  Receive Date: 20190503
  Receipt Date: 20190503
  Transmission Date: 20190711
  Serious: Yes (Hospitalization)
  Sender: FDA-Public Use
  Company Number: US-EISAI MEDICAL RESEARCH-EC-2016-016972

PATIENT
  Sex: Female

DRUGS (6)
  1. LENVIMA [Suspect]
     Active Substance: LENVATINIB
     Route: 048
  2. LENVIMA [Suspect]
     Active Substance: LENVATINIB
     Indication: THYROID CANCER
     Route: 048
     Dates: start: 20160325, end: 20160712
  3. LENVIMA [Suspect]
     Active Substance: LENVATINIB
     Route: 048
  4. LENVIMA [Suspect]
     Active Substance: LENVATINIB
     Route: 048
     Dates: start: 20160819, end: 201609
  5. LENVIMA [Suspect]
     Active Substance: LENVATINIB
     Route: 048
     Dates: start: 20160714, end: 201608
  6. LENVIMA [Suspect]
     Active Substance: LENVATINIB
     Dosage: UNSPECIFIED DOSE
     Route: 048
     Dates: start: 2016

REACTIONS (18)
  - Frequent bowel movements [Recovered/Resolved]
  - Headache [Not Recovered/Not Resolved]
  - Colitis [Not Recovered/Not Resolved]
  - Renal impairment [Recovering/Resolving]
  - Oral pain [Not Recovered/Not Resolved]
  - Constipation [Unknown]
  - Tumour marker increased [Unknown]
  - Hypertension [Recovering/Resolving]
  - Decreased appetite [Unknown]
  - Nausea [Recovering/Resolving]
  - Pollakiuria [Recovered/Resolved]
  - Abdominal discomfort [Not Recovered/Not Resolved]
  - Disease progression [Not Recovered/Not Resolved]
  - Dehydration [Unknown]
  - Vomiting [Recovering/Resolving]
  - Diarrhoea [Unknown]
  - Fatigue [Not Recovered/Not Resolved]
  - Weight decreased [Recovering/Resolving]

NARRATIVE: CASE EVENT DATE: 2016
